FAERS Safety Report 23902477 (Version 1)
Quarter: 2024Q2

REPORT INFORMATION
  Report Type: Spontaneous
  Country: DE (occurrence: DE)
  Receive Date: 20240527
  Receipt Date: 20240527
  Transmission Date: 20240716
  Serious: Yes (Hospitalization, Disabling, Other)
  Sender: FDA-Public Use
  Company Number: None

PATIENT
  Age: 38 Year
  Sex: Female

DRUGS (3)
  1. CHORIOGONADOTROPIN ALFA [Suspect]
     Active Substance: CHORIOGONADOTROPIN ALFA
     Indication: Assisted reproductive technology
     Dosage: 250 (UNIT UNSPECIFIED)
  2. GANIRELIX ACETATE [Suspect]
     Active Substance: GANIRELIX ACETATE
     Indication: Assisted reproductive technology
  3. MENOTROPINS [Suspect]
     Active Substance: MENOTROPINS
     Indication: Assisted reproductive technology

REACTIONS (1)
  - Tubo-ovarian abscess [Recovered/Resolved with Sequelae]

NARRATIVE: CASE EVENT DATE: 20240502
